FAERS Safety Report 4630139-7 (Version None)
Quarter: 2005Q2

REPORT INFORMATION
  Report Type: 
  Country: None (occurrence: None)
  Receive Date: 20050408
  Receipt Date: 20050330
  Transmission Date: 20051028
  Serious: Yes (Hospitalization)
  Sender: FDA-Public Use
  Company Number: I2005030113

PATIENT
  Age: 22 Year
  Sex: Female
  Weight: 53 kg

DRUGS (2)
  1. CLAMOXYL [Suspect]
     Dosage: 200MG PER DAY
     Route: 048
     Dates: start: 20050201, end: 20050203
  2. NIMESULIDE [Concomitant]
     Indication: PROPHYLAXIS
     Dosage: 200MG UNKNOWN
     Route: 065
     Dates: start: 20050201, end: 20050203

REACTIONS (3)
  - HYPOKINESIA [None]
  - OEDEMA PERIPHERAL [None]
  - RASH PAPULAR [None]
